FAERS Safety Report 13854989 (Version 1)
Quarter: 2017Q3

REPORT INFORMATION
  Report Type: Spontaneous
  Country: US (occurrence: US)
  Receive Date: 20170810
  Receipt Date: 20170810
  Transmission Date: 20171127
  Serious: No
  Sender: FDA-Public Use
  Company Number: US-BRAINTREE LABORATORIES-170151

PATIENT
  Age: 69 Year
  Sex: Female
  Weight: 55.34 kg

DRUGS (1)
  1. GOLYTELY [Suspect]
     Active Substance: POLYETHYLENE GLYCOL 3350\POTASSIUM CHLORIDE\SODIUM BICARBONATE\SODIUM CHLORIDE\SODIUM SULFATE ANHYDROUS
     Indication: COLONOSCOPY
     Dosage: 2L
     Route: 048
     Dates: start: 20170122, end: 20170122

REACTIONS (6)
  - Anorectal discomfort [None]
  - Fatigue [None]
  - Anorectal swelling [None]
  - Blood pressure decreased [None]
  - Diarrhoea [None]
  - Heart rate increased [None]

NARRATIVE: CASE EVENT DATE: 20170122
